FAERS Safety Report 19474185 (Version 10)
Quarter: 2022Q2

REPORT INFORMATION
  Report Type: Spontaneous
  Country: CA (occurrence: CA)
  Receive Date: 20210630
  Receipt Date: 20220527
  Transmission Date: 20220721
  Serious: Yes (Hospitalization, Other)
  Sender: FDA-Public Use
  Company Number: CA-CELLTRION INC.-2019CA022646

PATIENT

DRUGS (17)
  1. INFLECTRA [Suspect]
     Active Substance: INFLIXIMAB-DYYB
     Indication: Crohn^s disease
     Dosage: 400 MG, 0, 2, 6 WEEKS/(Q 0, 2, 6 WEEKS, THEN EVERY 8 WEEKS)
     Route: 042
     Dates: start: 20190604
  2. INFLECTRA [Suspect]
     Active Substance: INFLIXIMAB-DYYB
     Dosage: 400 MG, 0, 2, 6 WEEKS
     Route: 042
     Dates: start: 20190604
  3. INFLECTRA [Suspect]
     Active Substance: INFLIXIMAB-DYYB
     Dosage: 400 MG, 0, 2, 6 WEEKS
     Route: 042
     Dates: start: 20190624
  4. INFLECTRA [Suspect]
     Active Substance: INFLIXIMAB-DYYB
     Dosage: 400 MG, AT  0, 2, 6, THEN EVERY 6 WEEKS
     Route: 042
     Dates: start: 20190722
  5. INFLECTRA [Suspect]
     Active Substance: INFLIXIMAB-DYYB
     Dosage: 400 MG, (AT  0, 2, 6, THEN EVERY 6 WEEKS
     Route: 042
     Dates: start: 20200430
  6. INFLECTRA [Suspect]
     Active Substance: INFLIXIMAB-DYYB
     Dosage: 400 MG, AT  0, 2, 6, THEN EVERY 6 WEEKS
     Route: 042
     Dates: start: 20200623
  7. INFLECTRA [Suspect]
     Active Substance: INFLIXIMAB-DYYB
     Dosage: 400 MG, AT  0, 2, 6, THEN EVERY 6 WEEKS
     Route: 042
     Dates: start: 20200623
  8. INFLECTRA [Suspect]
     Active Substance: INFLIXIMAB-DYYB
     Dosage: 400 MG, AT  0, 2, 6, THEN EVERY 6 WEEKS
     Route: 042
     Dates: start: 20200827
  9. INFLECTRA [Suspect]
     Active Substance: INFLIXIMAB-DYYB
     Dosage: 400 MG, AT  0, 2, 6, THEN EVERY 6 WEEKS
     Route: 042
     Dates: start: 20201020
  10. INFLECTRA [Suspect]
     Active Substance: INFLIXIMAB-DYYB
     Dosage: 700 MG (Q 0, 2, 6, THEN EVERY 8 WEEKS. RE-INDUCTION.RECEIVED FIRST DOSE AT HOSPITAL)
     Route: 042
     Dates: start: 20210602
  11. INFLECTRA [Suspect]
     Active Substance: INFLIXIMAB-DYYB
     Dosage: 700 MG (Q 0, 2, 6, THEN EVERY 8 WEEKS. RE-INDUCTION.RECEIVED FIRST DOSE AT HOSPITAL)
     Route: 042
     Dates: start: 20210618
  12. INFLECTRA [Suspect]
     Active Substance: INFLIXIMAB-DYYB
     Dosage: 700 MG (Q 0, 2, 6, THEN EVERY 8 WEEKS. RE-INDUCTION.RECEIVED FIRST DOSE AT HOSPITAL)
     Route: 042
     Dates: start: 20210820
  13. INFLECTRA [Suspect]
     Active Substance: INFLIXIMAB-DYYB
     Dosage: 700 MG (Q 0, 2, 6, THEN EVERY 8 WEEKS. RE-INDUCTION.RECEIVED FIRST DOSE AT HOSPITAL)
     Route: 042
     Dates: start: 20211018
  14. INFLECTRA [Suspect]
     Active Substance: INFLIXIMAB-DYYB
     Dosage: 700 MG (Q 0, 2, 6, THEN EVERY 8 WEEKS. RE-INDUCTION.RECEIVED FIRST DOSE AT HOSPITAL)
     Route: 042
     Dates: start: 20211213
  15. INFLECTRA [Suspect]
     Active Substance: INFLIXIMAB-DYYB
     Dosage: 700 MG (Q 0, 2, 6, THEN EVERY 8 WEEKS. RE-INDUCTION.RECEIVED FIRST DOSE AT HOSPITAL)
     Route: 042
     Dates: start: 20220207
  16. PREDNISONE [Concomitant]
     Active Substance: PREDNISONE
     Dosage: 40 MG, TAPERING DOSE
     Route: 065
  17. PREDNISONE [Concomitant]
     Active Substance: PREDNISONE
     Dosage: 40 MG TAPERING DOSESTATUS: UNKNOWN
     Route: 065

REACTIONS (13)
  - Crohn^s disease [Not Recovered/Not Resolved]
  - Dependence [Unknown]
  - Substance abuse [Unknown]
  - Heart rate irregular [Unknown]
  - Faecal calprotectin increased [Unknown]
  - Blood pressure increased [Unknown]
  - Alcohol abuse [Unknown]
  - Treatment noncompliance [Unknown]
  - Weight increased [Not Recovered/Not Resolved]
  - Off label use [Unknown]
  - Off label use [Unknown]
  - Product dose omission issue [Unknown]
  - Product use issue [Unknown]

NARRATIVE: CASE EVENT DATE: 20190624
